FAERS Safety Report 5699405-0 (Version None)
Quarter: 2008Q2

REPORT INFORMATION
  Report Type: 
  Country: None (occurrence: None)
  Receive Date: 20080404
  Receipt Date: 20080320
  Transmission Date: 20081010
  Serious: Yes (Other)
  Sender: FDA-Public Use
  Company Number: ENTC2008-0095

PATIENT
  Age: 45 Year
  Sex: Male

DRUGS (1)
  1. STALEVO 100 [Suspect]

REACTIONS (2)
  - HYPERHIDROSIS [None]
  - SWOLLEN TONGUE [None]
